FAERS Safety Report 5384518-3 (Version None)
Quarter: 2007Q3

REPORT INFORMATION
  Report Type: 
  Country: None (occurrence: None)
  Receive Date: 20070711
  Receipt Date: 20060918
  Transmission Date: 20080115
  Serious: No
  Sender: FDA-Public Use
  Company Number: US-AMGEN-KDL193950

PATIENT
  Sex: Female

DRUGS (2)
  1. KINERET [Suspect]
     Indication: SYSTEMIC LUPUS ERYTHEMATOSUS
     Dates: start: 20060301
  2. METHOTREXATE [Concomitant]
     Dates: start: 19990101

REACTIONS (3)
  - ACNE [None]
  - INFLUENZA [None]
  - INJECTION SITE REACTION [None]
